FAERS Safety Report 5939806-6 (Version None)
Quarter: 2008Q4

REPORT INFORMATION
  Report Type: 
  Country: None (occurrence: None)
  Receive Date: 20081031
  Receipt Date: 20081031
  Transmission Date: 20090506
  Serious: No
  Sender: FDA-Public Use
  Company Number: None

PATIENT
  Sex: Female
  Weight: 84.369 kg

DRUGS (1)
  1. WELLBUTRIN SR [Suspect]
     Indication: DEPRESSION
     Dosage: 1 TWICE DAILY PO
     Route: 048
     Dates: start: 20080930, end: 20081027

REACTIONS (2)
  - PRODUCT QUALITY ISSUE [None]
  - RASH [None]
